FAERS Safety Report 19918195 (Version 1)
Quarter: 2021Q4

REPORT INFORMATION
  Report Type: Spontaneous
  Country: US (occurrence: US)
  Receive Date: 20211004
  Receipt Date: 20211004
  Transmission Date: 20220303
  Serious: Yes (Hospitalization)
  Sender: FDA-Public Use
  Company Number: None

PATIENT
  Sex: Male

DRUGS (14)
  1. ALBUTEROL\IPRATROPIUM [Suspect]
     Active Substance: ALBUTEROL\IPRATROPIUM
     Indication: Infective pulmonary exacerbation of cystic fibrosis
     Route: 048
     Dates: start: 20210806
  2. AZITHROMYCIN ANHYDROUS [Concomitant]
     Active Substance: AZITHROMYCIN ANHYDROUS
  3. CALCITRIOL [Concomitant]
     Active Substance: CALCITRIOL
  4. MEGACE [Concomitant]
     Active Substance: MEGESTROL ACETATE
  5. NEXIUM [Concomitant]
     Active Substance: ESOMEPRAZOLE MAGNESIUM
  6. PULMOZYME [Concomitant]
     Active Substance: DORNASE ALFA
  7. SODIUM CHLORIDE [Concomitant]
     Active Substance: SODIUM CHLORIDE
  8. SUPER B COMP [Concomitant]
  9. TAURINE [Concomitant]
     Active Substance: TAURINE
  10. VITAMIN A [Concomitant]
     Active Substance: VITAMIN A
  11. VITAMIN D [Concomitant]
     Active Substance: VITAMIN D NOS
  12. VITAMIN E [Concomitant]
     Active Substance: .ALPHA.-TOCOPHEROL
  13. VITAMIN K [Concomitant]
     Active Substance: PHYTONADIONE
  14. PULMOZYME SOL [Concomitant]

REACTIONS (1)
  - Renal impairment [None]
